FAERS Safety Report 11349593 (Version 1)
Quarter: 2015Q3

REPORT INFORMATION
  Report Type: Spontaneous
  Country: US (occurrence: None)
  Receive Date: 20150805
  Receipt Date: 20150805
  Transmission Date: 20151125
  Serious: Yes (Other)
  Sender: FDA-Public Use
  Company Number: US-2015VAL000501

PATIENT
  Weight: 1.6 kg

DRUGS (11)
  1. METHYLDOPA (METHYLDOPA) [Suspect]
     Active Substance: METHYLDOPA
     Indication: FOETAL EXPOSURE DURING PREGNANCY
     Route: 064
  2. ADRENALINE /00003901/ [Suspect]
     Active Substance: EPINEPHRINE
     Indication: FOETAL EXPOSURE DURING PREGNANCY
     Dosage: MATERNAL DOSE: 1:200000, TRANSPLACENTAL
     Route: 064
  3. HYDRALAZINE HYDROCHLORIDE. [Suspect]
     Active Substance: HYDRALAZINE HYDROCHLORIDE
     Indication: FOETAL EXPOSURE DURING PREGNANCY
     Route: 064
  4. INSULIN /00646001/ [Suspect]
     Active Substance: INSULIN NOS
     Indication: FOETAL EXPOSURE DURING PREGNANCY
     Route: 064
  5. MORPHINE [Suspect]
     Active Substance: MORPHINE
     Indication: FOETAL EXPOSURE DURING PREGNANCY
     Dosage: MATERNAL DOSE: 150 UG
     Route: 064
  6. FENTANYL NGX /00174602/ [Suspect]
     Active Substance: FENTANYL
     Indication: FOETAL EXPOSURE DURING PREGNANCY
     Dosage: MATERNAL DOSE: 15-20 MCG, TRANSPLACENTAL
     Route: 064
  7. FUROSEMIDE NGX /00032602/ [Suspect]
     Active Substance: FUROSEMIDE
     Indication: FOETAL EXPOSURE DURING PREGNANCY
     Route: 064
  8. BUPIVACAINE /00330102/ [Suspect]
     Active Substance: BUPIVACAINE
     Indication: FOETAL EXPOSURE DURING PREGNANCY
     Dosage: MATERNAL DOSE: 7.5 MG, UNK, TRANSPLACENTAL
     Route: 064
  9. ENOXAPARIN /01708202/ [Suspect]
     Active Substance: ENOXAPARIN SODIUM
     Indication: FOETAL EXPOSURE DURING PREGNANCY
     Route: 064
  10. METOPROLOL TARTRATE (METOPROLOL TARTRATE) UNKNOWN [Suspect]
     Active Substance: METOPROLOL TARTRATE
     Indication: FOETAL EXPOSURE DURING PREGNANCY
     Route: 064
  11. LIDOCAINE /00033402/ [Suspect]
     Active Substance: LIDOCAINE
     Indication: FOETAL EXPOSURE DURING PREGNANCY
     Dosage: MATERNAL DOSE: 2 %, TRANSPLACENTAL
     Route: 064

REACTIONS (6)
  - Low birth weight baby [None]
  - Foetal exposure during pregnancy [None]
  - Caesarean section [None]
  - Maternal drugs affecting foetus [None]
  - Premature baby [None]
  - Breech presentation [None]
